FAERS Safety Report 20358338 (Version 1)
Quarter: 2022Q1

REPORT INFORMATION
  Report Type: Spontaneous
  Country: US (occurrence: US)
  Receive Date: 20220120
  Receipt Date: 20220120
  Transmission Date: 20220424
  Serious: Yes (Other)
  Sender: FDA-Public Use
  Company Number: US-ELI_LILLY_AND_COMPANY-US202201005828

PATIENT
  Age: 69 Year
  Sex: Female

DRUGS (4)
  1. HUMALOG [Suspect]
     Active Substance: INSULIN LISPRO
     Indication: Product used for unknown indication
     Dosage: 30 U, UNKNOWN
     Route: 065
  2. HUMALOG [Suspect]
     Active Substance: INSULIN LISPRO
     Dosage: 30 U, UNKNOWN
     Route: 065
  3. NOVOLOG [Concomitant]
     Active Substance: INSULIN ASPART
     Indication: Blood glucose increased
  4. LANTUS [Concomitant]
     Active Substance: INSULIN GLARGINE
     Indication: Blood glucose increased

REACTIONS (3)
  - Eye haemorrhage [Unknown]
  - Blood glucose increased [Recovered/Resolved]
  - Drug ineffective [Recovering/Resolving]

NARRATIVE: CASE EVENT DATE: 20220110
